FAERS Safety Report 5644710-7 (Version None)
Quarter: 2008Q1

REPORT INFORMATION
  Report Type: 
  Country: None (occurrence: None)
  Receive Date: 20080229
  Receipt Date: 20070612
  Transmission Date: 20080703
  Serious: No
  Sender: FDA-Public Use
  Company Number: A0655311A

PATIENT
  Age: 63 Year
  Sex: Female

DRUGS (7)
  1. VALTREX [Suspect]
     Indication: HERPES ZOSTER
     Dosage: 500MG UNKNOWN
     Route: 048
  2. ZOVIRAX [Suspect]
     Indication: HERPES ZOSTER
     Dosage: 200MG FOUR TIMES PER DAY
     Route: 048
     Dates: end: 20070611
  3. SYNTHROID [Concomitant]
  4. CALCIUM [Concomitant]
  5. VITAMIN D [Concomitant]
  6. MULTI-VITAMIN [Concomitant]
  7. ASPIRIN [Concomitant]

REACTIONS (4)
  - DRUG INEFFECTIVE [None]
  - HEADACHE [None]
  - MALAISE [None]
  - NAUSEA [None]
